FAERS Safety Report 21066388 (Version 1)
Quarter: 2022Q3

REPORT INFORMATION
  Report Type: Spontaneous
  Country: CA (occurrence: CA)
  Receive Date: 20220711
  Receipt Date: 20220711
  Transmission Date: 20221026
  Serious: Yes (Congenital Anomaly, Other)
  Sender: FDA-Public Use
  Company Number: E2B_05033072

PATIENT
  Sex: Male

DRUGS (8)
  1. TRAMADOL HYDROCHLORIDE [Suspect]
     Active Substance: TRAMADOL HYDROCHLORIDE
     Indication: Pain
  2. ACETAMINOPHEN\OXYCODONE HYDROCHLORIDE [Suspect]
     Active Substance: ACETAMINOPHEN\OXYCODONE HYDROCHLORIDE
     Indication: Pain
  3. DILAUDID [Suspect]
     Active Substance: HYDROMORPHONE HYDROCHLORIDE
     Indication: Pain
     Route: 048
  4. HYDROMORPHONE HYDROCHLORIDE [Suspect]
     Active Substance: HYDROMORPHONE HYDROCHLORIDE
     Indication: Pain
     Route: 048
  5. METHADONE [Suspect]
     Active Substance: METHADONE HYDROCHLORIDE
  6. MORPHINE SULFATE [Suspect]
     Active Substance: MORPHINE SULFATE
     Route: 048
  7. OXYCODONE HYDROCHLORIDE [Suspect]
     Active Substance: OXYCODONE HYDROCHLORIDE
  8. OXYCONTIN [Suspect]
     Active Substance: OXYCODONE HYDROCHLORIDE

REACTIONS (4)
  - Depression [Not Recovered/Not Resolved]
  - Drug dependence [Not Recovered/Not Resolved]
  - Overdose [Not Recovered/Not Resolved]
  - Spina bifida [Not Recovered/Not Resolved]
